FAERS Safety Report 16343166 (Version 1)
Quarter: 2019Q2

REPORT INFORMATION
  Report Type: Spontaneous
  Country: US (occurrence: US)
  Receive Date: 20190521
  Receipt Date: 20190521
  Transmission Date: 20190711
  Serious: Yes (Hospitalization)
  Sender: FDA-Public Use
  Company Number: None

PATIENT
  Age: 62 Year
  Sex: Male

DRUGS (3)
  1. ENOXAPARIN INJECTION 40MG [Concomitant]
     Dates: start: 20190323
  2. HUMIRA [Suspect]
     Active Substance: ADALIMUMAB
     Indication: CROHN^S DISEASE
     Dosage: ?          OTHER FREQUENCY:ONCE A WEEK;?
     Route: 058
     Dates: start: 20190411
  3. AZATHIOPRINE 50MG TABLETS [Concomitant]
     Dates: start: 20190411

REACTIONS (3)
  - Diarrhoea [None]
  - Condition aggravated [None]
  - Crohn^s disease [None]

NARRATIVE: CASE EVENT DATE: 20190513
